FAERS Safety Report 10480263 (Version 1)
Quarter: 2014Q3

REPORT INFORMATION
  Report Type: Spontaneous
  Country: GB (occurrence: None)
  Receive Date: 20140925
  Receipt Date: 20140925
  Transmission Date: 20150326
  Serious: Yes (Hospitalization)
  Sender: FDA-Public Use
  Company Number: FK201403753

PATIENT
  Age: 62 Year
  Sex: Female

DRUGS (14)
  1. ETANERCEPT (ETANERCEPT) (ETANERCEPT) [Suspect]
     Active Substance: ETANERCEPT
     Indication: RHEUMATOID ARTHRITIS
     Route: 058
     Dates: start: 20120619, end: 20140610
  2. OMEPRAZOLE. [Concomitant]
     Active Substance: OMEPRAZOLE
  3. COCODAMOL [Concomitant]
     Active Substance: ACETAMINOPHEN\CODEINE PHOSPHATE
  4. CODEINE PHOSPHATE [Concomitant]
     Active Substance: CODEINE PHOSPHATE
  5. METHOTREXATE (MANUFACTURER UNKNOWN) (METHOTREXATE) (METHOTREXATE) [Suspect]
     Active Substance: METHOTREXATE
     Indication: RHEUMATOID ARTHRITIS
     Route: 048
     Dates: start: 20111208, end: 20131105
  6. COLECALCIFEROL [Concomitant]
     Active Substance: CHOLECALCIFEROL
  7. DICLOFENAC [Concomitant]
     Active Substance: DICLOFENAC
  8. CALCIUM CARBONATE. [Concomitant]
     Active Substance: CALCIUM CARBONATE
  9. PHOLCODINE [Concomitant]
     Active Substance: PHOLCODINE
  10. ALENDRONATE [Concomitant]
     Active Substance: ALENDRONATE SODIUM
  11. CALCICHEW D3 [Concomitant]
     Active Substance: CALCIUM\CHOLECALCIFEROL
  12. PARACETAMOL [Concomitant]
     Active Substance: ACETAMINOPHEN
  13. FOLIC ACID. [Concomitant]
     Active Substance: FOLIC ACID
  14. SIMVASTATIN. [Concomitant]
     Active Substance: SIMVASTATIN

REACTIONS (1)
  - Cellulitis [None]

NARRATIVE: CASE EVENT DATE: 20140614
